FAERS Safety Report 4300200-5 (Version None)
Quarter: 2004Q1

REPORT INFORMATION
  Report Type: 
  Country: None (occurrence: None)
  Receive Date: 20040218
  Receipt Date: 20040205
  Transmission Date: 20041129
  Serious: Yes (Hospitalization)
  Sender: FDA-Public Use
  Company Number: 2004007832

PATIENT
  Age: 79 Year
  Sex: Female
  Weight: 60 kg

DRUGS (7)
  1. LITHIUM CARBONATE [Suspect]
     Indication: BIPOLAR DISORDER
     Dosage: 250 MG (EVERY 12 HOURS)
  2. TIAPROFENIC ACID (TIAPROFENIC ACID) [Suspect]
     Indication: PAIN IN EXTREMITY
     Dosage: 600 MG (THREE TIMES A DAY)
  3. FOSINOPRIL SODIUM [Suspect]
     Indication: ILL-DEFINED DISORDER
     Dosage: 10 MG (DAILY)
  4. OXAZEPAM [Concomitant]
  5. PRIMIDONE [Concomitant]
  6. HALOPERIDOL [Concomitant]
  7. NIFEDIPINE [Concomitant]

REACTIONS (19)
  - AGITATION [None]
  - ANAEMIA [None]
  - ARTHRALGIA [None]
  - BLOOD CREATININE INCREASED [None]
  - DRUG INTERACTION [None]
  - DRUG LEVEL DECREASED [None]
  - DRUG LEVEL INCREASED [None]
  - FALL [None]
  - FLIGHT OF IDEAS [None]
  - HYPERTENSION [None]
  - HYPOMANIA [None]
  - INSOMNIA [None]
  - NORMOCHROMIC NORMOCYTIC ANAEMIA [None]
  - PARANOIA [None]
  - PERSECUTORY DELUSION [None]
  - PRESSURE OF SPEECH [None]
  - RENAL IMPAIRMENT [None]
  - TREATMENT NONCOMPLIANCE [None]
  - TREMOR [None]
